FAERS Safety Report 14409992 (Version 2)
Quarter: 2018Q1

REPORT INFORMATION
  Report Type: Spontaneous
  Country: AU (occurrence: AU)
  Receive Date: 20180119
  Receipt Date: 20180123
  Transmission Date: 20180509
  Serious: Yes (Death, Hospitalization, Other)
  Sender: FDA-Public Use
  Company Number: AU-009507513-1801AUS005966

PATIENT
  Age: 75 Year
  Sex: Female

DRUGS (1)
  1. PEMBROLIZUMAB. [Suspect]
     Active Substance: PEMBROLIZUMAB
     Indication: MESOTHELIOMA MALIGNANT
     Dosage: UNK, CYCLICAL (2 CYCLES)

REACTIONS (5)
  - Myasthenia gravis crisis [Fatal]
  - Myasthenia gravis [Unknown]
  - Off label use [Unknown]
  - Hepatitis [Unknown]
  - Autoimmune hypothyroidism [Unknown]
